FAERS Safety Report 8108555 (Version 3)
Quarter: 2014Q2

REPORT INFORMATION
  Report Type: Report from Study
  Country: AU (occurrence: AU)
  Receive Date: 20110826
  Receipt Date: 20140422
  Transmission Date: 20141212
  Serious: Yes (Other)
  Sender: FDA-Public Use
  Company Number: AU-CELGENEUS-008-21880-11081935

PATIENT
  Age: 64 Year
  Sex: Male

DRUGS (7)
  1. REVLIMID [Suspect]
     Indication: PLASMA CELL MYELOMA
     Route: 048
     Dates: start: 20110302, end: 20110625
  2. REVLIMID [Suspect]
     Route: 048
     Dates: start: 201201
  3. DEXAMETHASONE [Suspect]
     Indication: PLASMA CELL MYELOMA
     Route: 065
     Dates: start: 20110302, end: 20110625
  4. DEXAMETHASONE [Suspect]
     Route: 065
     Dates: start: 20110214
  5. DEXAMETHASONE [Suspect]
     Route: 065
     Dates: start: 201201
  6. BACTRIM DS [Concomitant]
     Indication: PRODUCT USED FOR UNKNOWN INDICATION
     Dosage: .4286 TABLET
     Route: 065
     Dates: start: 20110303, end: 201107
  7. ASPIRINE [Concomitant]
     Indication: THROMBOSIS PROPHYLAXIS
     Dosage: .4286 TABLET
     Route: 065
     Dates: start: 20110329, end: 20110630

REACTIONS (4)
  - Gastrointestinal stromal tumour [Not Recovered/Not Resolved]
  - Pulmonary embolism [Unknown]
  - Deep vein thrombosis [Unknown]
  - Diverticulum [Unknown]
